FAERS Safety Report 9099538 (Version 1)
Quarter: 2013Q1

REPORT INFORMATION
  Report Type: Spontaneous
  Country: FR (occurrence: FR)
  Receive Date: 20130214
  Receipt Date: 20130214
  Transmission Date: 20140127
  Serious: Yes (Death, Hospitalization)
  Sender: FDA-Public Use
  Company Number: FR-BRISTOL-MYERS SQUIBB COMPANY-17352717

PATIENT
  Age: 84 Year
  Sex: Female

DRUGS (2)
  1. COUMADIN TABS 2 MG [Suspect]
     Dosage: 1 DF = 1 TABS FOR 3 DYS ON FOUR?1/2 TABS 1 DY ON 4
  2. SIMVASTATIN [Suspect]
     Indication: HYPERCHOLESTEROLAEMIA

REACTIONS (3)
  - Haemorrhagic stroke [Fatal]
  - Rhabdomyolysis [Fatal]
  - Coma [Fatal]
